FAERS Safety Report 7574710-1 (Version None)
Quarter: 2011Q2

REPORT INFORMATION
  Report Type: 
  Country: None (occurrence: None)
  Receive Date: 20110627
  Receipt Date: 20091018
  Transmission Date: 20111010
  Serious: Yes (Hospitalization, Other)
  Sender: FDA-Public Use
  Company Number: US-BAYER-200936640NA

PATIENT
  Age: 83 Year
  Sex: Male
  Weight: 95 kg

DRUGS (18)
  1. SODIUM BICARBONATE [Concomitant]
     Dosage: 50 MILLIEQUIVALENT
     Route: 042
     Dates: start: 20051106, end: 20051106
  2. DEMADEX [Concomitant]
     Dosage: 20 MG, QD
  3. HEPARIN [Concomitant]
     Dosage: 35,000UNITS
     Route: 042
     Dates: start: 20051105, end: 20051118
  4. RED BLOOD CELLS [Concomitant]
     Dosage: 9 U, ONCE
     Route: 042
     Dates: start: 20051106
  5. CRYOPRECIPITATES [Concomitant]
     Dosage: 2 U, ONCE
     Route: 042
  6. LASIX [Concomitant]
     Dosage: 80 MG
  7. PLASMA [Concomitant]
     Dosage: 12 U, ONCE
     Route: 042
     Dates: start: 20051106
  8. INSULIN [Concomitant]
     Dosage: UNK
     Route: 042
     Dates: start: 20051106, end: 20051117
  9. TRASYLOL [Suspect]
     Indication: AORTIC VALVE REPLACEMENT
     Dosage: 100 ML LOADING DOSE
     Route: 042
     Dates: start: 20051106, end: 20051106
  10. AMIODARONE HCL [Concomitant]
     Dosage: 500MG/250CC
     Route: 042
     Dates: start: 20051106, end: 20051115
  11. ATENOLOL [Concomitant]
     Dosage: 100 MG
  12. SODIUM NITROPRUSSIDE [Concomitant]
     Dosage: 50MG/250CC
     Route: 042
     Dates: start: 20051106
  13. TRASYLOL [Suspect]
     Indication: CORONARY ARTERY BYPASS
     Dosage: 1 ML TEST DOSE
     Route: 042
     Dates: start: 20051106, end: 20051106
  14. DIOVAN [Concomitant]
     Dosage: 160 MG, QD
     Route: 048
     Dates: end: 20051106
  15. ACETYLSALICYLIC ACID SRT [Concomitant]
  16. NORVASC [Concomitant]
     Dosage: 10 MG, QD
     Route: 048
  17. CALCIUM CHLORIDE [Concomitant]
     Dosage: 1 GRAM
     Route: 042
     Dates: start: 20051106, end: 20051106
  18. NITROGLYCERIN [Concomitant]
     Dosage: 50MG/250CC
     Route: 042
     Dates: start: 20051105, end: 20051106

REACTIONS (8)
  - EMOTIONAL DISORDER [None]
  - STRESS [None]
  - RENAL FAILURE [None]
  - ANXIETY [None]
  - PAIN [None]
  - INJURY [None]
  - ANHEDONIA [None]
  - RENAL INJURY [None]
